FAERS Safety Report 6428654-9 (Version None)
Quarter: 2009Q4

REPORT INFORMATION
  Report Type: 
  Country: None (occurrence: None)
  Receive Date: 20091105
  Receipt Date: 20091026
  Transmission Date: 20100525
  Serious: Yes (Other)
  Sender: FDA-Public Use
  Company Number: ES-PFIZER INC-2008083234

PATIENT
  Age: 50 Year
  Sex: Female

DRUGS (3)
  1. LINEZOLID [Suspect]
     Indication: SEPTIC SHOCK
     Dosage: 600 MG, 2X/DAY
     Route: 042
     Dates: start: 20080905, end: 20080925
  2. METOCLOPRAMIDE [Interacting]
     Indication: NAUSEA
     Dosage: 10 MG, 3X/DAY
     Route: 042
     Dates: start: 20080924, end: 20080925
  3. TPN [Interacting]
     Dates: start: 20080824, end: 20080928

REACTIONS (4)
  - DRUG INTERACTION [None]
  - NAUSEA [None]
  - SEROTONIN SYNDROME [None]
  - VOMITING [None]
